FAERS Safety Report 7332087-0 (Version None)
Quarter: 2011Q1

REPORT INFORMATION
  Report Type: 
  Country: None (occurrence: None)
  Receive Date: 20110304
  Receipt Date: 20110224
  Transmission Date: 20110831
  Serious: Yes (Death)
  Sender: FDA-Public Use
  Company Number: US-BRACCO-005952

PATIENT
  Sex: Male

DRUGS (1)
  1. ISOVUE-128 [Suspect]
     Indication: COMPUTERISED TOMOGRAM
     Route: 042
     Dates: start: 20110201, end: 20110201

REACTIONS (2)
  - PULMONARY EMBOLISM [None]
  - PAIN IN EXTREMITY [None]
